FAERS Safety Report 10899382 (Version 3)
Quarter: 2015Q2

REPORT INFORMATION
  Report Type: Spontaneous
  Country: JP (occurrence: JP)
  Receive Date: 20150309
  Receipt Date: 20150408
  Transmission Date: 20150821
  Serious: Yes (Death)
  Sender: FDA-Public Use
  Company Number: JP-KERYX BIOPHARMA UK LTD-2014JP000762

PATIENT

DRUGS (14)
  1. RIONA [Suspect]
     Active Substance: FERRIC CITRATE ANHYDROUS
     Dosage: 250 MG, BID
     Route: 048
     Dates: start: 20141125, end: 20141202
  2. RIONA [Suspect]
     Active Substance: FERRIC CITRATE ANHYDROUS
     Dosage: 250 MG, TID
     Route: 048
     Dates: start: 20141203, end: 20141216
  3. NESP [Concomitant]
     Active Substance: DARBEPOETIN ALFA
     Indication: ANAEMIA
     Dosage: 60 ?G, UNK
     Route: 042
     Dates: end: 20141111
  4. MIRCERA [Concomitant]
     Active Substance: METHOXY POLYETHYLENE GLYCOL-EPOETIN BETA
     Dosage: 200 ?G, UNK
     Route: 042
     Dates: start: 20141118, end: 20141118
  5. REMITCH [Concomitant]
     Active Substance: NALFURAFINE HYDROCHLORIDE
     Dosage: 2.5 MG, QD
     Route: 048
  6. CALTAN [Concomitant]
     Active Substance: CALCIUM CARBONATE
     Indication: HYPERPHOSPHATAEMIA
     Dosage: 500 MG, QD
     Route: 048
  7. ERSIBON [Concomitant]
     Dosage: 0.5 ?G, QD
     Route: 048
  8. RIONA [Suspect]
     Active Substance: FERRIC CITRATE ANHYDROUS
     Indication: HYPERPHOSPHATAEMIA
     Dosage: 250 MG, TID
     Route: 048
     Dates: start: 20141111, end: 20141124
  9. MIRCERA [Concomitant]
     Active Substance: METHOXY POLYETHYLENE GLYCOL-EPOETIN BETA
     Indication: NEPHROGENIC ANAEMIA
     Dosage: 150 ?G, UNK
     Route: 042
     Dates: start: 20141202, end: 20141216
  10. EQUA [Concomitant]
     Active Substance: VILDAGLIPTIN
     Indication: DIABETES MELLITUS
     Dosage: 50 MG, UNK
     Route: 048
  11. GLUCOBAY [Concomitant]
     Active Substance: ACARBOSE
     Dosage: 50 MG, UNK
     Route: 048
  12. VITAMINS NOS [Concomitant]
     Active Substance: VITAMINS
     Dosage: 10 MG, UNK
     Route: 048
  13. FESIN                              /00023550/ [Concomitant]
     Active Substance: IRON SUCROSE
     Dosage: 40 MG, UNK
     Route: 042
     Dates: start: 20141023, end: 20141104
  14. GASTER [Concomitant]
     Active Substance: FAMOTIDINE
     Dosage: 10 MG, QD
     Route: 048

REACTIONS (5)
  - Thrombosis [None]
  - Haemoglobin increased [Fatal]
  - Cardiac failure [None]
  - Post procedural complication [None]
  - Haematocrit increased [None]

NARRATIVE: CASE EVENT DATE: 20141217
